FAERS Safety Report 20200541 (Version 1)
Quarter: 2021Q4

REPORT INFORMATION
  Report Type: Spontaneous
  Country: US (occurrence: US)
  Receive Date: 20211217
  Receipt Date: 20211217
  Transmission Date: 20220303
  Serious: No
  Sender: FDA-Public Use
  Company Number: US-PERRIGO-21US003833

PATIENT
  Age: 55 Year
  Sex: Female
  Weight: 64.399 kg

DRUGS (1)
  1. BACITRACIN [Suspect]
     Active Substance: BACITRACIN
     Indication: Prophylaxis
     Dosage: 1/2 TABLESPOON, SINGLE
     Route: 061
     Dates: start: 20210315, end: 20210315

REACTIONS (3)
  - Application site pain [Recovered/Resolved]
  - Application site pruritus [Recovered/Resolved]
  - Off label use [Recovered/Resolved]

NARRATIVE: CASE EVENT DATE: 20210315
